FAERS Safety Report 9461548 (Version 5)
Quarter: 2014Q1

REPORT INFORMATION
  Report Type: Report from Study
  Country: US (occurrence: US)
  Receive Date: 20130816
  Receipt Date: 20140109
  Transmission Date: 20141002
  Serious: Yes (Hospitalization, Other)
  Sender: FDA-Public Use
  Company Number: US-BRISTOL-MYERS SQUIBB COMPANY-19188077

PATIENT
  Age: 61 Year
  Sex: Male
  Weight: 111.56 kg

DRUGS (24)
  1. BLINDED: BYDUREON [Suspect]
     Indication: TYPE 2 DIABETES MELLITUS
     Dosage: INTERUPTED-05AUG13
     Dates: start: 20130418
  2. BLINDED: PLACEBO [Suspect]
     Indication: TYPE 2 DIABETES MELLITUS
     Dosage: INTER-05AUG13
     Dates: start: 20130418
  3. METFORMIN HCL TABS [Concomitant]
     Indication: TYPE 2 DIABETES MELLITUS
     Route: 048
     Dates: start: 20130215
  4. HYDROXYZINE PAMOATE [Concomitant]
     Indication: ANXIETY
     Route: 048
     Dates: start: 20120813
  5. SERTRALINE HCL [Concomitant]
     Indication: DEPRESSION
     Dosage: 26NOV12
     Route: 048
     Dates: start: 20121116
  6. TRAZODONE HCL [Concomitant]
     Indication: DEPRESSION
     Route: 048
     Dates: start: 20110930
  7. ATORVASTATIN [Concomitant]
     Indication: DYSLIPIDAEMIA
     Route: 048
     Dates: start: 20120820
  8. CLOPIDOGREL BISULFATE [Concomitant]
     Indication: PROPHYLAXIS
     Route: 048
     Dates: start: 20120820
  9. ALBUTEROL [Concomitant]
     Indication: CHRONIC OBSTRUCTIVE PULMONARY DISEASE
     Route: 055
     Dates: start: 20121001
  10. BACLOFEN [Concomitant]
     Indication: HYPOTONIA
     Route: 048
     Dates: start: 20121011
  11. NICOTINE [Concomitant]
     Indication: EX-TOBACCO USER
     Route: 055
     Dates: start: 20110816
  12. HYDROCODONE + ACETAMINOPHEN [Concomitant]
     Indication: PAIN
     Route: 048
     Dates: start: 20121126
  13. LISINOPRIL [Concomitant]
     Indication: BLOOD PRESSURE
     Route: 048
     Dates: start: 20121001
  14. FISH OIL [Concomitant]
     Indication: PROPHYLAXIS
     Route: 048
     Dates: start: 20110829
  15. BETACAROTENE [Concomitant]
     Indication: VITAMIN SUPPLEMENTATION
     Dates: start: 20110829
  16. CALCIUM CARBONATE [Concomitant]
     Indication: VITAMIN SUPPLEMENTATION
     Route: 048
     Dates: start: 20110829
  17. MAGNESIUM [Concomitant]
     Indication: VITAMIN SUPPLEMENTATION
     Dosage: 1DF=3 TABS
     Route: 048
     Dates: start: 20110829
  18. NIACIN [Concomitant]
     Indication: VITAMIN SUPPLEMENTATION
     Dosage: 1DF= 1TAB
     Route: 048
     Dates: start: 20110829
  19. VITAMIN E [Concomitant]
     Indication: VITAMIN SUPPLEMENTATION
     Dosage: 1DF=800 UNITS
     Route: 048
     Dates: start: 20110829
  20. ASCORBIC ACID [Concomitant]
     Indication: VITAMIN SUPPLEMENTATION
     Dosage: 1DF=3 SCOOPS POWDER
     Dates: start: 20110829
  21. VITAMIN B COMPLEX [Concomitant]
     Indication: VITAMIN SUPPLEMENTATION
     Dosage: 1DF= 1 TAB
     Route: 048
     Dates: start: 20110829
  22. CHOLECALCIFEROL [Concomitant]
     Indication: VITAMIN SUPPLEMENTATION
     Dosage: 1DF= 1TAB
     Route: 048
     Dates: start: 20110829
  23. ASPIRIN [Concomitant]
     Indication: PROPHYLAXIS
     Route: 048
     Dates: start: 20120912
  24. METOPROLOL [Concomitant]
     Indication: HYPERTENSION
     Route: 048
     Dates: start: 20130616

REACTIONS (2)
  - Pancreatitis [Recovering/Resolving]
  - Pulmonary mass [Recovering/Resolving]
